FAERS Safety Report 8530522-3 (Version None)
Quarter: 2012Q3

REPORT INFORMATION
  Report Type: 
  Country: None (occurrence: None)
  Receive Date: 20120723
  Receipt Date: 20120713
  Transmission Date: 20120928
  Serious: Yes (Hospitalization)
  Sender: FDA-Public Use
  Company Number: DE-PFIZER INC-2012170620

PATIENT
  Age: 70 Year
  Sex: Male
  Weight: 69 kg

DRUGS (6)
  1. SIMVASTATIN [Concomitant]
     Indication: PROPHYLAXIS
     Dosage: UNK, DAILY
     Route: 048
     Dates: start: 20120229
  2. AXITINIB [Suspect]
     Indication: METASTATIC RENAL CELL CARCINOMA
     Dosage: 2 MG, 2X/DAY
     Route: 048
     Dates: start: 20090401
  3. TORASEMIDE [Concomitant]
     Indication: PROPHYLAXIS
     Dosage: UNK, DAILY
     Route: 048
     Dates: start: 20120229
  4. ASPIRIN [Concomitant]
     Indication: THROMBOSIS PROPHYLAXIS
     Dosage: UNK, DAILY
     Route: 048
     Dates: start: 20120229
  5. CANDESARTAN [Concomitant]
     Indication: HYPERTENSION
     Dosage: 16 MG, DAILY
     Route: 048
     Dates: start: 20120229
  6. TICAGRELOR [Concomitant]
     Indication: THROMBOSIS PROPHYLAXIS
     Dosage: UNK, DAILY
     Route: 048
     Dates: start: 20120229

REACTIONS (1)
  - CARDIAC FAILURE [None]
